FAERS Safety Report 21471670 (Version 2)
Quarter: 2023Q4

REPORT INFORMATION
  Report Type: Spontaneous
  Country: US (occurrence: US)
  Receive Date: 20221018
  Receipt Date: 20231115
  Transmission Date: 20240110
  Serious: No
  Sender: FDA-Public Use
  Company Number: US-PFIZER INC-PV202200083806

PATIENT
  Age: 71 Year

DRUGS (3)
  1. TIKOSYN [Suspect]
     Active Substance: DOFETILIDE
     Dosage: 500 MG, 2X/DAY
     Route: 048
  2. TIKOSYN [Suspect]
     Active Substance: DOFETILIDE
     Dosage: 500 UG, 2X/DAY, 1 TAB BY MOUTH
     Route: 048
  3. DOFETILIDE [Suspect]
     Active Substance: DOFETILIDE
     Dosage: 500 UG, 2X/DAY, 1 TAB BY MOUTH
     Route: 048

REACTIONS (1)
  - Hypoacusis [Unknown]
